FAERS Safety Report 25407494 (Version 1)
Quarter: 2025Q2

REPORT INFORMATION
  Report Type: Spontaneous
  Country: US (occurrence: None)
  Receive Date: 20250605
  Receipt Date: 20250605
  Transmission Date: 20250716
  Serious: Yes (Hospitalization)
  Sender: FDA-CTU
  Company Number: None

PATIENT
  Age: 9 Month
  Sex: Male

DRUGS (1)
  1. OFLOXACIN [Suspect]
     Active Substance: OFLOXACIN
     Indication: Eye infection
     Dosage: FREQUENCY : 4 TIMES A DAY;?
     Route: 047
     Dates: start: 20250524

REACTIONS (4)
  - Eye swelling [None]
  - Drug hypersensitivity [None]
  - Product prescribing issue [None]
  - Incorrect dose administered [None]

NARRATIVE: CASE EVENT DATE: 20250528
